FAERS Safety Report 9243007 (Version 1)
Quarter: 2013Q2

REPORT INFORMATION
  Report Type: Spontaneous
  Country: US (occurrence: US)
  Receive Date: 20130419
  Receipt Date: 20130419
  Transmission Date: 20140414
  Serious: Yes (Hospitalization)
  Sender: FDA-Public Use
  Company Number: US-ELI_LILLY_AND_COMPANY-US201304000753

PATIENT
  Age: 64 Year
  Sex: Female
  Weight: 82.54 kg

DRUGS (15)
  1. EFFIENT [Suspect]
     Indication: STENT PLACEMENT
     Dosage: UNK
     Dates: start: 20120328
  2. ADVAIR [Concomitant]
  3. ALBUTEROL [Concomitant]
  4. ENALAPRIL [Concomitant]
  5. POTASSIUM [Concomitant]
  6. ALDACTONE [Concomitant]
  7. NEXIUM [Concomitant]
  8. ZOLOFT [Concomitant]
  9. ASA [Concomitant]
  10. MICROZIDE [Concomitant]
  11. PRAVASTATIN [Concomitant]
  12. ANTIVERT [Concomitant]
  13. CARDIZEM                           /00489701/ [Concomitant]
  14. MAG-OX [Concomitant]
  15. NITROSTAT [Concomitant]

REACTIONS (2)
  - Heart rate increased [Unknown]
  - Chest discomfort [Unknown]
